FAERS Safety Report 4419693-8 (Version None)
Quarter: 2004Q3

REPORT INFORMATION
  Report Type: 
  Country: None (occurrence: None)
  Receive Date: 20040804
  Receipt Date: 20040723
  Transmission Date: 20050211
  Serious: Yes (Hospitalization)
  Sender: FDA-Public Use
  Company Number: RENA-11085

PATIENT
  Age: 53 Year
  Sex: Male

DRUGS (9)
  1. PHOSBLOCK - 250 MG TABLET [Suspect]
     Indication: HYPERPHOSPHATAEMIA
     Dosage: SEE IMAGE
     Route: 048
     Dates: start: 20030903, end: 20030916
  2. PHOSBLOCK - 250 MG TABLET [Suspect]
     Indication: HYPERPHOSPHATAEMIA
     Dosage: SEE IMAGE
     Route: 048
     Dates: start: 20030917, end: 20031007
  3. PHOSBLOCK - 250 MG TABLET [Suspect]
     Indication: HYPERPHOSPHATAEMIA
     Dosage: SEE IMAGE
     Route: 048
     Dates: start: 20031008, end: 20031014
  4. PHOSBLOCK - 250 MG TABLET [Suspect]
     Indication: HYPERPHOSPHATAEMIA
     Dosage: SEE IMAGE
     Route: 048
     Dates: start: 20031015, end: 20040621
  5. ALLOPURINOL [Concomitant]
  6. REBAMIPIDE [Concomitant]
  7. CALCIUM CARBONATE [Concomitant]
  8. LANSOPRAZOLE [Concomitant]
  9. LOSARTAN POTASSIUM [Concomitant]

REACTIONS (4)
  - ENTERITIS [None]
  - ILEUS [None]
  - LARGE INTESTINE PERFORATION [None]
  - STAPHYLOCOCCAL INFECTION [None]
